FAERS Safety Report 5452087-5 (Version None)
Quarter: 2007Q3

REPORT INFORMATION
  Report Type: 
  Country: None (occurrence: None)
  Receive Date: 20070803
  Receipt Date: 20070604
  Transmission Date: 20080115
  Serious: Yes (Other)
  Sender: FDA-Public Use
  Company Number: SPV1-2007-02533

PATIENT
  Age: 11 Year
  Sex: Male
  Weight: 51.7 kg

DRUGS (3)
  1. DAYTRANA [Suspect]
     Dosage: 15MG, TRANSDERMAL; 10 MG, TRANSDERMAL
     Route: 062
     Dates: start: 20070319, end: 20070319
  2. RISPERDAL [Concomitant]
  3. CLONIDINE [Concomitant]

REACTIONS (3)
  - APPLICATION SITE BLEEDING [None]
  - APPLICATION SITE RASH [None]
  - APPLICATION SITE VESICLES [None]
